FAERS Safety Report 8075020-9 (Version None)
Quarter: 2012Q1

REPORT INFORMATION
  Report Type: 
  Country: None (occurrence: None)
  Receive Date: 20120127
  Receipt Date: 20120118
  Transmission Date: 20120608
  Serious: No
  Sender: FDA-Public Use
  Company Number: US-BIOGENIDEC-2012BI002129

PATIENT
  Age: 47 Year
  Sex: Female

DRUGS (2)
  1. TYSABRI [Suspect]
     Indication: MULTIPLE SCLEROSIS
     Route: 042
     Dates: start: 20070803, end: 20070914
  2. TYSABRI [Suspect]
     Route: 042
     Dates: start: 20110715

REACTIONS (4)
  - PALPITATIONS [None]
  - ANXIETY [None]
  - SYNCOPE [None]
  - DIZZINESS [None]
